FAERS Safety Report 5061130-7 (Version None)
Quarter: 2006Q3

REPORT INFORMATION
  Report Type: 
  Country: None (occurrence: None)
  Receive Date: 20060720
  Receipt Date: 20060720
  Transmission Date: 20061208
  Serious: No
  Sender: FDA-Public Use
  Company Number: None

PATIENT
  Age: 78 Year
  Sex: Male

DRUGS (1)
  1. LOVASTATIN [Suspect]
     Indication: HYPERLIPIDAEMIA
     Dosage: 40 MG PO QPM
     Route: 048

REACTIONS (1)
  - ARRHYTHMIA [None]
